FAERS Safety Report 6716110-X (Version None)
Quarter: 2010Q2

REPORT INFORMATION
  Report Type: 
  Country: None (occurrence: None)
  Receive Date: 20100507
  Receipt Date: 20100426
  Transmission Date: 20101027
  Serious: Yes (Hospitalization)
  Sender: FDA-Public Use
  Company Number: US-ROCHE-689248

PATIENT
  Sex: Male

DRUGS (10)
  1. PEGINTERFERON ALFA-2A [Suspect]
     Indication: HEPATITIS C
     Dosage: PATIENT WAS IN WEEK 22 OF THERAPY; PRE-FILLED SYRINGE
     Route: 065
     Dates: start: 20091130
  2. RIBAVIRIN [Suspect]
     Indication: HEPATITIS C
     Dosage: PATIENT WAS IN WEEK 10 OF THERAPY; DIVIDED DOSES
     Route: 065
     Dates: start: 20091130
  3. RIBAVIRIN [Suspect]
     Dosage: DIVIDED DOSES. WEEK 22 OF TREATMENT
     Route: 065
  4. DIOVAN [Concomitant]
  5. NEXIUM [Concomitant]
  6. FERROUS SULFATE TAB [Concomitant]
  7. FUROSEMIDE [Concomitant]
  8. SPIRONOLACTONE [Concomitant]
  9. ZOLPIDEM [Concomitant]
  10. TYLENOL-500 [Concomitant]

REACTIONS (6)
  - ANAEMIA [None]
  - CHEST PAIN [None]
  - DIZZINESS [None]
  - FALL [None]
  - HEADACHE [None]
  - INSOMNIA [None]
